FAERS Safety Report 8924527 (Version 1)
Quarter: 2012Q4

REPORT INFORMATION
  Report Type: 
  Country: GB (occurrence: GB)
  Receive Date: 20121126
  Receipt Date: 20121126
  Transmission Date: 20130627
  Serious: Yes (Life-Threatening, Disabling, Other)
  Sender: FDA-Public Use
  Company Number: PHHY2012GB106839

PATIENT
  Age: 28 Year
  Sex: Female
  Weight: 40.5 kg

DRUGS (2)
  1. CITALOPRAM [Suspect]
     Indication: DEPRESSION
     Dosage: At night.
     Route: 048
     Dates: start: 20100710, end: 20100831
  2. AMITRIPTYLINE [Concomitant]

REACTIONS (5)
  - Emotional distress [Unknown]
  - Depersonalisation [Recovered/Resolved with Sequelae]
  - Dissociation [Unknown]
  - Emotional poverty [Unknown]
  - Palpitations [Recovered/Resolved]
